FAERS Safety Report 5290916-9 (Version None)
Quarter: 2007Q2

REPORT INFORMATION
  Report Type: 
  Country: None (occurrence: None)
  Receive Date: 20070409
  Receipt Date: 20070328
  Transmission Date: 20071010
  Serious: Yes (Hospitalization)
  Sender: FDA-Public Use
  Company Number: JP-PFIZER INC-2007024852

PATIENT
  Age: 4 Year
  Sex: Female

DRUGS (1)
  1. ZITHROMAC [Suspect]
     Route: 048
     Dates: start: 20070215, end: 20070217

REACTIONS (1)
  - RHABDOMYOLYSIS [None]
